FAERS Safety Report 9222363 (Version 1)
Quarter: 2013Q2

REPORT INFORMATION
  Report Type: Spontaneous
  Country: US (occurrence: None)
  Receive Date: 20130410
  Receipt Date: 20130410
  Transmission Date: 20140414
  Serious: No
  Sender: FDA-Public Use
  Company Number: None

PATIENT
  Sex: 0

DRUGS (1)
  1. WARFARIN ALL STRENGTHS TARO [Suspect]
     Dosage: VARIABLE DAILY PO
     Route: 048
     Dates: start: 20120401, end: 20130408

REACTIONS (3)
  - International normalised ratio abnormal [None]
  - Product substitution issue [None]
  - Product quality issue [None]
